FAERS Safety Report 16765001 (Version 3)
Quarter: 2019Q4

REPORT INFORMATION
  Report Type: Spontaneous
  Country: US (occurrence: US)
  Receive Date: 20190903
  Receipt Date: 20191015
  Transmission Date: 20200122
  Serious: Yes (Hospitalization)
  Sender: FDA-Public Use
  Company Number: US-PFIZER INC-2018392631

PATIENT
  Age: 71 Year
  Sex: Female
  Weight: 72.57 kg

DRUGS (3)
  1. RELPAX [Suspect]
     Active Substance: ELETRIPTAN HYDROBROMIDE
     Indication: MIGRAINE
     Dosage: 40 MG, AS NEEDED  (ONE TABLET BUT MAY REPEAT ONCE IN 2 HOURS IF NEEDED; UP TO 12 PER MONTH)
     Route: 048
  2. SUMATRIPTAN SUCCINATE. [Suspect]
     Active Substance: SUMATRIPTAN SUCCINATE
     Dosage: UNK
  3. RELPAX [Suspect]
     Active Substance: ELETRIPTAN HYDROBROMIDE
     Indication: HEADACHE
     Dosage: 40 MG, AS NEEDED (ONE TABLET AT THE ONSET)
     Route: 048
     Dates: end: 201811

REACTIONS (7)
  - Blood pressure decreased [Unknown]
  - Thinking abnormal [Unknown]
  - Product prescribing error [Unknown]
  - Recalled product administered [Unknown]
  - Disturbance in attention [Unknown]
  - Dyskinesia [Unknown]
  - Hypersensitivity [Unknown]
